FAERS Safety Report 8992090 (Version 1)
Quarter: 2012Q4

REPORT INFORMATION
  Report Type: 
  Country: CN (occurrence: CN)
  Receive Date: 20121231
  Receipt Date: 20121231
  Transmission Date: 20130627
  Serious: Yes (Other)
  Sender: FDA-Public Use
  Company Number: PHHY2012CN120477

PATIENT
  Age: 10 Year
  Sex: Male
  Weight: 27 kg

DRUGS (1)
  1. TEGRETOL [Suspect]
     Indication: EPILEPSY
     Dosage: 0.4 g, TID
     Dates: start: 20090723, end: 20090730

REACTIONS (3)
  - Delirium [Recovering/Resolving]
  - Hallucination, visual [Recovering/Resolving]
  - Irritability [Recovering/Resolving]
